FAERS Safety Report 24953713 (Version 2)
Quarter: 2025Q1

REPORT INFORMATION
  Report Type: Spontaneous
  Country: US (occurrence: US)
  Receive Date: 20250211
  Receipt Date: 20250228
  Transmission Date: 20250408
  Serious: No
  Sender: KARYOPHARM THERAPEUTICS
  Company Number: US-KARYOPHARM-2025KPT000126

PATIENT

DRUGS (13)
  1. XPOVIO [Suspect]
     Active Substance: SELINEXOR
     Indication: Plasma cell myeloma
     Dosage: 40 MG, WEEKLY
     Route: 048
     Dates: start: 20250204
  2. ALFUZOSIN [Concomitant]
     Active Substance: ALFUZOSIN
  3. CIALIS [Concomitant]
     Active Substance: TADALAFIL
  4. CICLOPIROX [Concomitant]
     Active Substance: CICLOPIROX
  5. DEXAMETHASONE [Concomitant]
     Active Substance: DEXAMETHASONE
  6. ELIQUIS [Concomitant]
     Active Substance: APIXABAN
  7. FINASTERIDE [Concomitant]
     Active Substance: FINASTERIDE
  8. FLUTICASONE [Concomitant]
     Active Substance: FLUTICASONE
  9. GABAPENTIN [Concomitant]
     Active Substance: GABAPENTIN
  10. LEVOTHYROXINE [Concomitant]
     Active Substance: LEVOTHYROXINE
  11. LISINOPRIL [Concomitant]
     Active Substance: LISINOPRIL
  12. LUMIGAN [Concomitant]
     Active Substance: BIMATOPROST
  13. ONDANSETRON [Concomitant]
     Active Substance: ONDANSETRON

REACTIONS (2)
  - Ageusia [Unknown]
  - Asthenia [Unknown]

NARRATIVE: CASE EVENT DATE: 20250201
